FAERS Safety Report 4983751-X (Version None)
Quarter: 2006Q1

REPORT INFORMATION
  Report Type: 
  Country: None (occurrence: None)
  Receive Date: 20060301
  Receipt Date: 20051202
  Transmission Date: 20060701
  Serious: Yes (Other)
  Sender: FDA-Public Use
  Company Number: 2005VX000819

PATIENT
  Age: 12 Year
  Sex: Male

DRUGS (1)
  1. PERMAX [Suspect]
     Indication: TOURETTE'S DISORDER
     Dosage: 0.05 MG;QD;PO
     Route: 048

REACTIONS (2)
  - SINUS ARRHYTHMIA [None]
  - TACHYCARDIA [None]
